FAERS Safety Report 12712742 (Version 2)
Quarter: 2016Q3

REPORT INFORMATION
  Report Type: Spontaneous
  Country: US (occurrence: US)
  Receive Date: 20160902
  Receipt Date: 20160909
  Transmission Date: 20161109
  Serious: Yes (Hospitalization)
  Sender: FDA-Public Use
  Company Number: US-VERTEX PHARMACEUTICALS-2016-005136

PATIENT
  Age: 18 Year
  Sex: Female

DRUGS (4)
  1. TOBI [Concomitant]
     Active Substance: TOBRAMYCIN
  2. PULMOZYME [Concomitant]
     Active Substance: DORNASE ALFA
  3. HYPERSAL [Concomitant]
  4. ORKAMBI [Suspect]
     Active Substance: IVACAFTOR\LUMACAFTOR
     Indication: CYSTIC FIBROSIS
     Dosage: 400/250 MG BID
     Route: 048
     Dates: start: 20160727

REACTIONS (1)
  - Infective pulmonary exacerbation of cystic fibrosis [Recovered/Resolved]

NARRATIVE: CASE EVENT DATE: 20160822
